FAERS Safety Report 20979439 (Version 1)
Quarter: 2022Q2

REPORT INFORMATION
  Report Type: Spontaneous
  Country: US (occurrence: None)
  Receive Date: 20220620
  Receipt Date: 20220620
  Transmission Date: 20220720
  Serious: No
  Sender: FDA-Public Use
  Company Number: 2022A213858

PATIENT
  Weight: 99.8 kg

DRUGS (1)
  1. FASENRA [Suspect]
     Active Substance: BENRALIZUMAB
     Indication: Asthma
     Route: 058

REACTIONS (5)
  - Illness [Unknown]
  - Dyspnoea [Unknown]
  - Cough [Unknown]
  - Gait disturbance [Unknown]
  - Product dose omission issue [Not Recovered/Not Resolved]
